FAERS Safety Report 7218670-1 (Version None)
Quarter: 2011Q1

REPORT INFORMATION
  Report Type: 
  Country: None (occurrence: None)
  Receive Date: 20110110
  Receipt Date: 20100818
  Transmission Date: 20110831
  Serious: No
  Sender: FDA-Public Use
  Company Number: US-ABBOTT-10P-163-0665520-00

PATIENT
  Sex: Male
  Weight: 108.96 kg

DRUGS (1)
  1. VICODIN [Suspect]
     Indication: PAIN
     Dosage: NO REPORTED

REACTIONS (3)
  - HEADACHE [None]
  - DRUG HYPERSENSITIVITY [None]
  - NAUSEA [None]
